FAERS Safety Report 7811799-6 (Version None)
Quarter: 2011Q4

REPORT INFORMATION
  Report Type: 
  Country: None (occurrence: None)
  Receive Date: 20111013
  Receipt Date: 20110907
  Transmission Date: 20120403
  Serious: Yes (Death)
  Sender: FDA-Public Use
  Company Number: PHHO2011BF15228

PATIENT
  Sex: Female

DRUGS (1)
  1. CGP 56697 [Suspect]
     Indication: MALARIA
     Dosage: 25 / 120 MG 4 TABLETS BID
     Route: 048
     Dates: start: 20110417, end: 20110419

REACTIONS (1)
  - DEATH [None]
